FAERS Safety Report 7996933-X (Version None)
Quarter: 2011Q4

REPORT INFORMATION
  Report Type: 
  Country: None (occurrence: None)
  Receive Date: 20111216
  Receipt Date: 20111209
  Transmission Date: 20120403
  Serious: Yes (Hospitalization)
  Sender: FDA-Public Use
  Company Number: 127446

PATIENT
  Age: 77 Year
  Sex: Female

DRUGS (1)
  1. DOBUTAMINE HCL [Suspect]

REACTIONS (3)
  - MITRAL VALVE INCOMPETENCE [None]
  - CORONARY ARTERY STENOSIS [None]
  - STRESS CARDIOMYOPATHY [None]
